FAERS Safety Report 25075614 (Version 1)
Quarter: 2025Q1

REPORT INFORMATION
  Report Type: Spontaneous
  Country: CA (occurrence: CA)
  Receive Date: 20250313
  Receipt Date: 20250313
  Transmission Date: 20250408
  Serious: Yes (Hospitalization)
  Sender: PFIZER
  Company Number: CA-PFIZER INC-202500054707

PATIENT
  Age: 51 Year
  Sex: Male

DRUGS (8)
  1. CYTARABINE [Suspect]
     Active Substance: CYTARABINE
  2. CISPLATIN [Suspect]
     Active Substance: CISPLATIN
  3. RITUXIMAB [Suspect]
     Active Substance: RITUXIMAB
  4. CANDESARTAN [Concomitant]
     Active Substance: CANDESARTAN
  5. AMOXICILLIN\CLAVULANATE POTASSIUM [Concomitant]
     Active Substance: AMOXICILLIN\CLAVULANATE POTASSIUM
     Route: 065
  6. IBRUTINIB [Concomitant]
     Active Substance: IBRUTINIB
  7. INDAPAMIDE [Concomitant]
     Active Substance: INDAPAMIDE
  8. OLANZAPINE [Concomitant]
     Active Substance: OLANZAPINE

REACTIONS (3)
  - Dehydration [Recovered/Resolved]
  - Febrile neutropenia [Recovered/Resolved]
  - Hypokalaemia [Recovered/Resolved]
